FAERS Safety Report 5446245-3 (Version None)
Quarter: 2007Q3

REPORT INFORMATION
  Report Type: 
  Country: None (occurrence: None)
  Receive Date: 20070731
  Receipt Date: 20070502
  Transmission Date: 20080115
  Serious: Yes (Hospitalization, Other)
  Sender: FDA-Public Use
  Company Number: US-2007-015890

PATIENT
  Age: 85 Year
  Sex: Female
  Weight: 45.4 kg

DRUGS (1)
  1. MAGNEVIST [Suspect]
     Indication: NUCLEAR MAGNETIC RESONANCE IMAGING BRAIN
     Dosage: 15 ML, 1 DOSE, INTRAVENOUS
     Route: 042
     Dates: start: 20070430, end: 20070430

REACTIONS (5)
  - DYSPHONIA [None]
  - ERYTHEMA [None]
  - PERIORBITAL OEDEMA [None]
  - SNEEZING [None]
  - SYNCOPE [None]
